FAERS Safety Report 13141455 (Version 3)
Quarter: 2017Q2

REPORT INFORMATION
  Report Type: Spontaneous
  Country: US (occurrence: US)
  Receive Date: 20170124
  Receipt Date: 20170504
  Transmission Date: 20170830
  Serious: No
  Sender: FDA-Public Use
  Company Number: US-009507513-1701USA005282

PATIENT
  Sex: Male
  Weight: 122.2 kg

DRUGS (1)
  1. CUBICIN RF [Suspect]
     Active Substance: DAPTOMYCIN
     Indication: BACTERAEMIA
     Dosage: 750 MG, Q24H
     Route: 042
     Dates: start: 20160315, end: 20170117

REACTIONS (2)
  - Product preparation error [Unknown]
  - No adverse event [Unknown]
